FAERS Safety Report 8201142-5 (Version None)
Quarter: 2012Q1

REPORT INFORMATION
  Report Type: 
  Country: None (occurrence: None)
  Receive Date: 20120312
  Receipt Date: 20120302
  Transmission Date: 20120608
  Serious: Yes (Other)
  Sender: FDA-Public Use
  Company Number: US-JNJFOC-20111205573

PATIENT
  Sex: Female
  Weight: 68.04 kg

DRUGS (7)
  1. L-THEANINE [Concomitant]
     Indication: HYPERTENSION
     Route: 065
  2. LIALDA [Concomitant]
     Indication: COLITIS ULCERATIVE
     Route: 065
  3. ADVAIR DISKUS 100/50 [Concomitant]
     Indication: ASTHMA
     Route: 065
  4. COUMADIN [Concomitant]
     Indication: PULMONARY EMBOLISM
     Route: 065
  5. DIOVAN [Concomitant]
     Indication: HYPERTENSION
     Route: 065
  6. EFFEXOR [Concomitant]
     Indication: DEPRESSION
     Route: 065
  7. REMICADE [Suspect]
     Indication: COLITIS ULCERATIVE
     Route: 042
     Dates: start: 20111101, end: 20111101

REACTIONS (2)
  - RENAL CYST [None]
  - COLITIS ULCERATIVE [None]
